FAERS Safety Report 7275993-8 (Version None)
Quarter: 2011Q1

REPORT INFORMATION
  Report Type: 
  Country: None (occurrence: None)
  Receive Date: 20110204
  Receipt Date: 20110125
  Transmission Date: 20110831
  Serious: Yes (Death, Hospitalization)
  Sender: FDA-Public Use
  Company Number: B0680488A

PATIENT
  Age: 54 Year
  Sex: Male

DRUGS (18)
  1. DULOXETINE [Concomitant]
     Dates: start: 20100615
  2. ALBUTEROL [Concomitant]
     Dates: start: 20100513
  3. IBUPROFEN [Concomitant]
     Dates: start: 20100223
  4. SUMATRIPTAN [Concomitant]
     Dates: start: 20091207
  5. MARAVIROC [Suspect]
     Indication: HIV INFECTION
     Dosage: 600MG TWICE PER DAY
     Dates: start: 20100824
  6. DIPHENOXYLATE HCL + ATROPINE SULFATE [Concomitant]
     Dates: start: 20091207
  7. MOMETASONE FUROATE [Concomitant]
     Dates: start: 20100223
  8. AMITRIPTYLINE HCL [Concomitant]
     Dates: start: 20100824
  9. OMEPRAZOLE [Concomitant]
     Dates: start: 20100811
  10. PROCHLORPERAZINE [Concomitant]
     Dates: start: 20100223
  11. DRONABINOL [Concomitant]
     Dates: start: 20091207
  12. TRUVADA [Concomitant]
     Dosage: 1TAB PER DAY
     Dates: start: 20091207
  13. AMLODIPINE [Concomitant]
     Dates: start: 20091207
  14. ETRAVIRINE [Concomitant]
     Dates: start: 20091207
  15. HYDROCODONE BITARTRATE + ACETAMINOPHEN [Concomitant]
     Dates: start: 20100513
  16. RANITIDINE [Concomitant]
     Dates: start: 20100223
  17. ZOLPIDEM [Concomitant]
     Dates: start: 20091207
  18. INTELENCE [Concomitant]
     Dosage: 400MG PER DAY
     Dates: start: 20091207

REACTIONS (3)
  - LYMPHOMA [None]
  - PAIN [None]
  - PERFORMANCE STATUS DECREASED [None]
